FAERS Safety Report 16874385 (Version 1)
Quarter: 2019Q4

REPORT INFORMATION
  Report Type: Spontaneous
  Country: CA (occurrence: CA)
  Receive Date: 20191001
  Receipt Date: 20191001
  Transmission Date: 20200122
  Serious: Yes (Hospitalization, Other)
  Sender: FDA-Public Use
  Company Number: CA-TEVA-2019-CA-1115089

PATIENT
  Age: 64 Year
  Sex: Female

DRUGS (9)
  1. FUROSEMIDE. [Suspect]
     Active Substance: FUROSEMIDE
     Indication: PRODUCT USED FOR UNKNOWN INDICATION
     Dosage: 80 MILLIGRAM DAILY;
     Route: 048
  2. INDOMETACIN [Suspect]
     Active Substance: INDOMETHACIN
     Indication: GOUT
     Dosage: 150 MILLIGRAM DAILY;
     Route: 048
  3. IRBESARTAN. [Suspect]
     Active Substance: IRBESARTAN
     Indication: PRODUCT USED FOR UNKNOWN INDICATION
     Dosage: 300 MILLIGRAM DAILY;
     Route: 048
  4. SPIRONOLACTONE. [Suspect]
     Active Substance: SPIRONOLACTONE
     Indication: PRODUCT USED FOR UNKNOWN INDICATION
     Dosage: 25 MILLIGRAM DAILY;
     Route: 048
  5. NITROGLYCERIN. [Concomitant]
     Active Substance: NITROGLYCERIN
  6. ATORVASTATIN CALCIUM. [Concomitant]
     Active Substance: ATORVASTATIN CALCIUM
  7. CLOPIDOGREL [Concomitant]
     Active Substance: CLOPIDOGREL BISULFATE
  8. INSULIN [Concomitant]
     Active Substance: INSULIN NOS
  9. NORTRIPTYLINE [Concomitant]
     Active Substance: NORTRIPTYLINE

REACTIONS (15)
  - Hypophagia [Unknown]
  - Chromaturia [Unknown]
  - Fatigue [Unknown]
  - Blood potassium increased [Unknown]
  - Blood urea abnormal [Unknown]
  - Blood sodium decreased [Unknown]
  - Vertigo [Unknown]
  - White blood cell analysis abnormal [Unknown]
  - Sputum discoloured [Unknown]
  - Sputum increased [Unknown]
  - Staphylococcus test positive [Unknown]
  - Vomiting [Unknown]
  - Blood creatinine abnormal [Unknown]
  - Blood glucose abnormal [Unknown]
  - Dizziness [Unknown]
